FAERS Safety Report 5772109-1 (Version None)
Quarter: 2008Q2

REPORT INFORMATION
  Report Type: 
  Country: None (occurrence: None)
  Receive Date: 20080611
  Receipt Date: 20080528
  Transmission Date: 20081010
  Serious: Yes (Hospitalization)
  Sender: FDA-Public Use
  Company Number: 000873

PATIENT
  Age: 82 Year
  Sex: Female

DRUGS (8)
  1. PLETAL [Suspect]
     Indication: LACUNAR INFARCTION
     Dosage: 100 MG, BID, ORAL
     Route: 048
     Dates: start: 20040917, end: 20080325
  2. MEVALOTIN JPN (PRAVASTATIN SODIUM) TABLET, 5 MG [Concomitant]
  3. DEPAS (ETIZOLAM) TABLET, 0.5 MG [Concomitant]
  4. NORVASC [Concomitant]
  5. JUVELA N (TOCOPHEROL NICOTINATE) CAPSULE [Concomitant]
  6. SELBEX (TEPRENONE) [Concomitant]
  7. DANTRIUM [Concomitant]
  8. PAXIL [Concomitant]

REACTIONS (3)
  - BLOOD CREATININE INCREASED [None]
  - FAECES DISCOLOURED [None]
  - GASTRIC ULCER HAEMORRHAGE [None]
